FAERS Safety Report 25362754 (Version 1)
Quarter: 2025Q2

REPORT INFORMATION
  Report Type: Spontaneous
  Country: DE (occurrence: DE)
  Receive Date: 20250527
  Receipt Date: 20250527
  Transmission Date: 20250716
  Serious: Yes (Hospitalization, Other)
  Sender: MYLAN
  Company Number: DE-002147023-NVSC2023DE062901

PATIENT
  Sex: Female

DRUGS (3)
  1. METHOTREXATE [Suspect]
     Active Substance: METHOTREXATE
     Indication: Product used for unknown indication
     Dosage: 5 MILLIGRAM, QW
     Dates: end: 202306
  2. RITUXIMAB [Suspect]
     Active Substance: RITUXIMAB
     Indication: Product used for unknown indication
  3. RITUXIMAB [Suspect]
     Active Substance: RITUXIMAB

REACTIONS (11)
  - Gait disturbance [Recovered/Resolved]
  - Polyneuropathy [Recovered/Resolved]
  - Rheumatic disorder [Recovered/Resolved]
  - Vascular encephalopathy [Recovered/Resolved]
  - Polymyalgia rheumatica [Recovered/Resolved]
  - Cardiac failure [Unknown]
  - Atrial fibrillation [Recovered/Resolved]
  - Arthralgia [Unknown]
  - Pneumocystis test positive [Recovered/Resolved]
  - Interstitial lung disease [Recovered/Resolved]
  - Urinary tract infection [Recovered/Resolved]

NARRATIVE: CASE EVENT DATE: 20230109
